FAERS Safety Report 14185439 (Version 2)
Quarter: 2018Q1

REPORT INFORMATION
  Report Type: Spontaneous
  Country: IL (occurrence: IL)
  Receive Date: 20171113
  Receipt Date: 20180223
  Transmission Date: 20180508
  Serious: Yes (Hospitalization)
  Sender: FDA-Public Use
  Company Number: IL-BAXTER-2017BAX036911

PATIENT
  Age: 69 Year
  Sex: Male

DRUGS (3)
  1. NACL 0.9% INTRAVENOUS SOLUTION BP [Suspect]
     Active Substance: SODIUM CHLORIDE
     Indication: MEDICATION DILUTION
     Dosage: COMPOUNDED WITH ORBENIL
     Route: 065
     Dates: start: 20171011
  2. ORBENIL [Suspect]
     Active Substance: CLOXACILLIN SODIUM
     Indication: STAPHYLOCOCCAL INFECTION
  3. ORBENIL [Suspect]
     Active Substance: CLOXACILLIN SODIUM
     Indication: SPINAL CORD INFECTION
     Dosage: ORBENIL (CLOXACILLIN) FOR INJECTION 2GR/VIAL, POWDER, COMPOUNDED WITH SODIUM CHLORIDE 0.9%
     Route: 065
     Dates: start: 20171011

REACTIONS (2)
  - Rash [Recovered/Resolved]
  - Rash generalised [Recovered/Resolved]

NARRATIVE: CASE EVENT DATE: 20171011
